FAERS Safety Report 8786634 (Version 1)
Quarter: 2012Q4

REPORT INFORMATION
  Report Type: Report from Study
  Country: US (occurrence: US)
  Receive Date: 20120914
  Receipt Date: 20120914
  Transmission Date: 20130627
  Serious: Yes (Hospitalization)
  Sender: FDA-Public Use
  Company Number: PHHO2012US013004

PATIENT
  Age: 29 Year
  Sex: Female
  Weight: 64.1 kg

DRUGS (4)
  1. AFINITOR [Suspect]
     Indication: LYMPHOMA
     Dosage: 5 mg, daily for 28 days
     Route: 048
     Dates: start: 20120803, end: 20120903
  2. REVLIMID [Suspect]
     Indication: LYMPHOMA
     Dosage: 15 mg, daily for 21 days
     Route: 048
     Dates: start: 20120803, end: 20120903
  3. ASPIRIN [Concomitant]
     Dosage: 81 mg, QD
     Route: 048
  4. PENICILLIN V POTASSIUM [Concomitant]
     Dosage: 500 mg, BID
     Route: 048

REACTIONS (4)
  - Lymphadenopathy [Unknown]
  - Mucosal inflammation [Unknown]
  - Decreased appetite [Unknown]
  - Pyrexia [Unknown]
